FAERS Safety Report 21799085 (Version 1)
Quarter: 2022Q4

REPORT INFORMATION
  Report Type: Report from Study
  Country: EG (occurrence: EG)
  Receive Date: 20221230
  Receipt Date: 20221230
  Transmission Date: 20230113
  Serious: Yes (Other)
  Sender: FDA-Public Use
  Company Number: EG-002147023-NVSC2022EG298873

PATIENT
  Age: 44 Year
  Sex: Male

DRUGS (4)
  1. LEQVIO [Suspect]
     Active Substance: INCLISIRAN SODIUM
     Indication: Hypercholesterolaemia
     Dosage: ONE DOSE INITIALLY, ANOTHER DOSE AFTER 6 MONTHS
     Route: 058
     Dates: start: 202106, end: 202112
  2. LEQVIO [Suspect]
     Active Substance: INCLISIRAN SODIUM
     Indication: COVID-19
  3. LEQVIO [Suspect]
     Active Substance: INCLISIRAN SODIUM
     Indication: Pulmonary fibrosis
  4. EXFORGE [Concomitant]
     Active Substance: AMLODIPINE BESYLATE\VALSARTAN
     Indication: Hypertension
     Dosage: STARTED FROM 2018 OR 2019, 10MG/160MG/25MG
     Route: 065

REACTIONS (3)
  - Blood cholesterol increased [Unknown]
  - Blood uric acid increased [Unknown]
  - Cardiac disorder [Unknown]

NARRATIVE: CASE EVENT DATE: 20221222
